FAERS Safety Report 4932574-6 (Version None)
Quarter: 2006Q1

REPORT INFORMATION
  Report Type: 
  Country: None (occurrence: None)
  Receive Date: 20060303
  Receipt Date: 20060123
  Transmission Date: 20060701
  Serious: Yes (Other)
  Sender: FDA-Public Use
  Company Number: US-MERCK-0601USA02819

PATIENT
  Age: 73 Year
  Sex: Male
  Weight: 81 kg

DRUGS (6)
  1. VYTORIN [Suspect]
     Route: 048
     Dates: start: 20051011
  2. NAPROSYN [Concomitant]
     Route: 065
  3. ULTRAM [Concomitant]
     Route: 065
  4. LESCOL [Concomitant]
     Route: 065
  5. VITAMINS (UNSPECIFIED) [Concomitant]
     Route: 065
  6. ZETIA [Concomitant]
     Route: 048

REACTIONS (4)
  - ANGIOPATHY [None]
  - BLINDNESS UNILATERAL [None]
  - OCULAR VASCULAR DISORDER [None]
  - OPTIC NERVE INJURY [None]
